FAERS Safety Report 9916476 (Version 2)
Quarter: 2014Q1

REPORT INFORMATION
  Report Type: Spontaneous
  Country: US (occurrence: US)
  Receive Date: 20140221
  Receipt Date: 20140226
  Transmission Date: 20141002
  Serious: Yes (Hospitalization, Other)
  Sender: FDA-Public Use
  Company Number: US-SA-2014SA020800

PATIENT
  Age: 74 Year
  Sex: Female

DRUGS (4)
  1. LANTUS [Suspect]
     Indication: TYPE 2 DIABETES MELLITUS
     Route: 058
     Dates: start: 2008, end: 2010
  2. LANTUS SOLOSTAR [Suspect]
     Indication: TYPE 1 DIABETES MELLITUS
     Dosage: DOSE:18 UNIT(S)
     Route: 058
     Dates: start: 2010
  3. SOLOSTAR [Suspect]
     Indication: TYPE 1 DIABETES MELLITUS
     Dates: start: 2010
  4. HUMALOG [Concomitant]
     Dosage: DOSE:1 UNIT(S)

REACTIONS (9)
  - Fall [Unknown]
  - Hip fracture [Unknown]
  - Rotator cuff syndrome [Unknown]
  - Visual impairment [Unknown]
  - Malaise [Unknown]
  - Stress [Unknown]
  - Pain [Unknown]
  - Injection site pain [Unknown]
  - Blood glucose increased [Unknown]
